FAERS Safety Report 5608191-1 (Version None)
Quarter: 2008Q1

REPORT INFORMATION
  Report Type: 
  Country: None (occurrence: None)
  Receive Date: 20080130
  Receipt Date: 20080118
  Transmission Date: 20080703
  Serious: Yes (Other)
  Sender: FDA-Public Use
  Company Number: US-ELI_LILLY_AND_COMPANY-US200801003908

PATIENT
  Sex: Female

DRUGS (1)
  1. HUMALOG [Suspect]
     Dosage: UNK, UNK
     Dates: start: 20020101

REACTIONS (5)
  - COMPRESSION FRACTURE [None]
  - FALL [None]
  - FRACTURE [None]
  - RHEUMATOID ARTHRITIS [None]
  - SURGERY [None]
